FAERS Safety Report 10042799 (Version 2)
Quarter: 2014Q2

REPORT INFORMATION
  Report Type: Spontaneous
  Country: US (occurrence: US)
  Receive Date: 20140327
  Receipt Date: 20140616
  Transmission Date: 20141212
  Serious: Yes (Hospitalization, Other)
  Sender: FDA-Public Use
  Company Number: US-GILEAD-2014-0098081

PATIENT
  Sex: Female

DRUGS (4)
  1. LETAIRIS [Suspect]
     Indication: PULMONARY HYPERTENSION
     Dosage: 5 MG, UNK
     Route: 065
     Dates: start: 20080327
  2. LETAIRIS [Suspect]
     Indication: CHRONIC OBSTRUCTIVE PULMONARY DISEASE
  3. LETAIRIS [Suspect]
     Indication: SARCOIDOSIS
  4. LETAIRIS [Suspect]
     Indication: RHEUMATOID ARTHRITIS

REACTIONS (1)
  - Pneumonia [Unknown]
